FAERS Safety Report 5565672-7 (Version None)
Quarter: 2007Q4

REPORT INFORMATION
  Report Type: 
  Country: None (occurrence: None)
  Receive Date: 20071218
  Receipt Date: 20071204
  Transmission Date: 20080405
  Serious: Yes (Hospitalization)
  Sender: FDA-Public Use
  Company Number: GB-RANBAXY-2007RR-11929

PATIENT

DRUGS (5)
  1. FUROSEMIDE TABLETS BP 40MG [Suspect]
     Indication: OEDEMA PERIPHERAL
     Dosage: 20 MG, QD
     Route: 048
     Dates: start: 20071106
  2. RAMIPRIL [Suspect]
     Indication: OEDEMA PERIPHERAL
     Dosage: 1.25 MG, UNK
     Route: 048
     Dates: start: 20071106, end: 20071113
  3. CALCHICHEW D3 [Concomitant]
     Indication: MINERAL SUPPLEMENTATION
     Dosage: 2 DF, BID
     Route: 048
  4. LANSOPRAZOLE 15 MG GASTRO-RESISTANT CAPSULES [Concomitant]
     Dosage: 15 MG, QD
     Route: 048
  5. LEVOTHYROXINE SODIUM [Concomitant]
     Indication: THYROXINE FREE DECREASED
     Dosage: 25 UG, TID
     Route: 048

REACTIONS (1)
  - ANGIOEDEMA [None]
